FAERS Safety Report 25328639 (Version 1)
Quarter: 2025Q2

REPORT INFORMATION
  Report Type: Spontaneous
  Country: TW (occurrence: TW)
  Receive Date: 20250519
  Receipt Date: 20250519
  Transmission Date: 20250716
  Serious: Yes (Other)
  Sender: UCB
  Company Number: TW-GSK-TW2025APC055895

PATIENT
  Age: 80 Year
  Sex: Male
  Weight: 68.5 kg

DRUGS (17)
  1. KEPPRA [Suspect]
     Active Substance: LEVETIRACETAM
     Indication: Epilepsy
     Dosage: 500 MG, BID, ONCE EVERY 12 HOURS
     Route: 041
     Dates: start: 20250327, end: 20250327
  2. KEPPRA [Suspect]
     Active Substance: LEVETIRACETAM
     Dosage: 1000 MG, BID, ONCE EVERY 12 HOURS
     Route: 041
     Dates: start: 20250329, end: 20250407
  3. KEPPRA [Suspect]
     Active Substance: LEVETIRACETAM
     Indication: Epilepsy
     Dosage: 1000 MG, BID, ONCE EVERY 0.5 DAYS
     Route: 048
     Dates: start: 20250407, end: 20250411
  4. TIGECYCLINE [Suspect]
     Active Substance: TIGECYCLINE
     Indication: Product used for unknown indication
     Dates: start: 20250330, end: 20250410
  5. ANIDULAFUNGIN [Suspect]
     Active Substance: ANIDULAFUNGIN
     Indication: Product used for unknown indication
     Dates: start: 20250406, end: 20250407
  6. CEFEPIME [Suspect]
     Active Substance: CEFEPIME HYDROCHLORIDE
     Indication: Product used for unknown indication
     Dates: start: 20250407, end: 20250416
  7. FLUCONAZOLE [Suspect]
     Active Substance: FLUCONAZOLE
     Indication: Fungal infection
     Route: 041
     Dates: start: 20250408, end: 20250418
  8. NOREPINEPHRINE [Concomitant]
     Active Substance: NOREPINEPHRINE
     Indication: Hypotension
     Dates: start: 20250324, end: 20250324
  9. AMIODARONE [Concomitant]
     Active Substance: AMIODARONE
     Indication: Atrial fibrillation
     Dates: start: 20250318, end: 20250328
  10. MEROPENEM [Concomitant]
     Active Substance: MEROPENEM
     Indication: Pneumonia
     Dates: start: 20250324
  11. MEROPENEM [Concomitant]
     Active Substance: MEROPENEM
     Indication: Septic shock
  12. METOCLOPRAMIDE [Concomitant]
     Active Substance: METOCLOPRAMIDE
     Indication: Abdominal distension
     Dates: start: 202503, end: 20250328
  13. METOCLOPRAMIDE [Concomitant]
     Active Substance: METOCLOPRAMIDE
     Indication: Gastrointestinal motility disorder
  14. LORAZEPAM [Concomitant]
     Active Substance: LORAZEPAM
     Indication: Convulsions local
     Dates: start: 20250327, end: 20250328
  15. VALPROIC ACID [Concomitant]
     Active Substance: VALPROIC ACID
     Indication: Convulsions local
     Dates: start: 20250328
  16. VALPROIC ACID [Concomitant]
     Active Substance: VALPROIC ACID
     Dosage: 400 MG, TID
     Dates: end: 20250331
  17. COLISTIN [Concomitant]
     Active Substance: COLISTIN
     Indication: Product used for unknown indication
     Dates: start: 20250331

REACTIONS (4)
  - Hepatitis [Recovered/Resolved]
  - Thrombocytopenia [Recovered/Resolved]
  - Renal impairment [Recovered/Resolved]
  - Fungal infection [Recovered/Resolved]
